FAERS Safety Report 12787283 (Version 1)
Quarter: 2016Q3

REPORT INFORMATION
  Report Type: Report from Study
  Country: US (occurrence: US)
  Receive Date: 20160927
  Receipt Date: 20160927
  Transmission Date: 20161109
  Serious: Yes (Other)
  Sender: FDA-Public Use
  Company Number: US-BRISTOL-MYERS SQUIBB COMPANY-BMS-2016-077778

PATIENT
  Age: 13 Year
  Sex: Male
  Weight: 48.35 kg

DRUGS (16)
  1. EXTERNAL-METHOTREXATE SODIUM [Suspect]
     Active Substance: METHOTREXATE SODIUM
     Dosage: 3000 MG/M2, UNK
     Route: 042
     Dates: start: 20160328
  2. EXTERNAL-CYCLOPHOSPHAMIDE [Suspect]
     Active Substance: CYCLOPHOSPHAMIDE
     Indication: ANAPLASTIC LARGE-CELL LYMPHOMA
     Dosage: 200 MG/M2, UNK
     Route: 042
  3. EXTERNAL-DEXAMETHASONE [Suspect]
     Active Substance: DEXAMETHASONE
     Dosage: 5 MG/M2, BID
     Route: 048
  4. EXTERNAL-IFOSFAMIDE [Suspect]
     Active Substance: IFOSFAMIDE
     Indication: ANAPLASTIC LARGE-CELL LYMPHOMA
     Dosage: 800 MG/M2, UNK
     Route: 042
     Dates: start: 20160328
  5. EXTERNAL-CRIZOTINIB [Suspect]
     Active Substance: CRIZOTINIB
     Dosage: 165 MG/M2, BID
     Route: 048
  6. EXTERNAL-CYTARABINE [Suspect]
     Active Substance: CYTARABINE
     Indication: ANAPLASTIC LARGE-CELL LYMPHOMA
     Dosage: 1 DF, UNK
     Route: 037
  7. EXTERNAL-DOXORUBICIN HYDROCHLORIDE [Suspect]
     Active Substance: DOXORUBICIN HYDROCHLORIDE
     Indication: ANAPLASTIC LARGE-CELL LYMPHOMA
     Dosage: 25 MG/M2, UNK
     Route: 042
  8. EXTERNAL-DEXAMETHASONE [Suspect]
     Active Substance: DEXAMETHASONE
     Dosage: 5 MG/M2, BID
     Route: 048
  9. EXTERNAL-CYCLOPHOSPHAMIDE [Suspect]
     Active Substance: CYCLOPHOSPHAMIDE
     Dosage: 200 MG/M2, UNK
     Route: 042
  10. EXTERNAL-CYTARABINE [Suspect]
     Active Substance: CYTARABINE
     Dosage: 150 MG/M2, UNK
     Route: 042
     Dates: start: 20160328
  11. EXTERNAL-DEXAMETHASONE [Suspect]
     Active Substance: DEXAMETHASONE
     Dosage: 5 MG/M2, BID
     Route: 048
     Dates: start: 20160328
  12. ETOPOSIDE PHOSPHATE [Suspect]
     Active Substance: ETOPOSIDE PHOSPHATE
     Indication: ANAPLASTIC LARGE-CELL LYMPHOMA
     Dosage: 100 MG/M2, UNK
     Route: 042
     Dates: start: 20160328
  13. EXTERNAL-DEXAMETHASONE [Suspect]
     Active Substance: DEXAMETHASONE
     Indication: ANAPLASTIC LARGE-CELL LYMPHOMA
     Dosage: 5 MG/M2, QD
     Route: 048
  14. EXTERNAL-CRIZOTINIB [Suspect]
     Active Substance: CRIZOTINIB
     Indication: ANAPLASTIC LARGE-CELL LYMPHOMA
     Dosage: 165 MG/M2, BID
     Route: 048
     Dates: start: 20160328
  15. EXTERNAL-METHOTREXATE SODIUM [Suspect]
     Active Substance: METHOTREXATE SODIUM
     Indication: ANAPLASTIC LARGE-CELL LYMPHOMA
     Dosage: 1 DF, UNK
     Route: 037
  16. EXTERNAL-METHOTREXATE SODIUM [Suspect]
     Active Substance: METHOTREXATE SODIUM
     Dosage: 3000 MG/M2, UNK
     Route: 042
     Dates: start: 20160328

REACTIONS (1)
  - Vascular access complication [Unknown]

NARRATIVE: CASE EVENT DATE: 20160718
